FAERS Safety Report 14505643 (Version 1)
Quarter: 2018Q1

REPORT INFORMATION
  Report Type: Spontaneous
  Country: GB (occurrence: GB)
  Receive Date: 20180208
  Receipt Date: 20180208
  Transmission Date: 20180509
  Serious: Yes (Congenital Anomaly, Other)
  Sender: FDA-Public Use
  Company Number: GB-ABBVIE-18P-167-2242693-00

PATIENT
  Sex: Female

DRUGS (1)
  1. EPILIM [Suspect]
     Active Substance: VALPROATE SODIUM
     Indication: MATERNAL EXPOSURE TIMING UNSPECIFIED
     Route: 064

REACTIONS (8)
  - Foetal exposure during pregnancy [Unknown]
  - Mental disability [Unknown]
  - Ill-defined disorder [Unknown]
  - Foetal anticonvulsant syndrome [Unknown]
  - Cognitive disorder [Unknown]
  - Suicide attempt [Unknown]
  - Learning disorder [Unknown]
  - Visual impairment [Unknown]
